FAERS Safety Report 25000266 (Version 1)
Quarter: 2025Q1

REPORT INFORMATION
  Report Type: Spontaneous
  Country: US (occurrence: US)
  Receive Date: 20250222
  Receipt Date: 20250222
  Transmission Date: 20250409
  Serious: No
  Sender: SANOFI AVENTIS
  Company Number: US-SA-2025SA051762

PATIENT
  Age: 44 Year
  Sex: Female
  Weight: 70.45 kg

DRUGS (13)
  1. DUPIXENT [Suspect]
     Active Substance: DUPILUMAB
     Indication: Illness
     Dosage: 300 MG, QOW
     Route: 058
  2. HYDROCORTISONE VALERATE [Concomitant]
     Active Substance: HYDROCORTISONE VALERATE
  3. DESONIDE [Concomitant]
     Active Substance: DESONIDE
  4. TRIAMCINOLONE ACETONIDE [Concomitant]
     Active Substance: TRIAMCINOLONE ACETONIDE
  5. TACROLIMUS [Concomitant]
     Active Substance: TACROLIMUS
  6. PRAMOSONE [Concomitant]
     Active Substance: HYDROCORTISONE ACETATE\PRAMOXINE HYDROCHLORIDE
  7. ELIDEL [Concomitant]
     Active Substance: PIMECROLIMUS
  8. OLANZAPINE [Concomitant]
     Active Substance: OLANZAPINE
  9. ETHINYL ESTRADIOL\LEVONORGESTREL [Concomitant]
     Active Substance: ETHINYL ESTRADIOL\LEVONORGESTREL
  10. MUPIROCIN [Concomitant]
     Active Substance: MUPIROCIN
  11. FLUOCINONIDE [Concomitant]
     Active Substance: FLUOCINONIDE
  12. EUCRISA [Concomitant]
     Active Substance: CRISABOROLE
  13. ALCLOMETASONE DIPROPIONATE [Concomitant]
     Active Substance: ALCLOMETASONE DIPROPIONATE

REACTIONS (1)
  - Fistula [Unknown]
